FAERS Safety Report 6613516-4 (Version None)
Quarter: 2010Q1

REPORT INFORMATION
  Report Type: 
  Country: None (occurrence: None)
  Receive Date: 20100304
  Receipt Date: 20100301
  Transmission Date: 20100710
  Serious: Yes (Hospitalization, Other)
  Sender: FDA-Public Use
  Company Number: IT-ROXANE LABORATORIES, INC.-2010-RO-00218RO

PATIENT
  Age: 28 Year
  Sex: Male

DRUGS (9)
  1. MYCOPHENOLATE MOFETIL [Suspect]
     Indication: IMMUNOSUPPRESSANT DRUG THERAPY
  2. TACROLIMUS [Suspect]
     Indication: IMMUNOSUPPRESSANT DRUG THERAPY
  3. TRIMETHOPRIM + SULFAMETHOXAZOLE [Suspect]
     Indication: ANTIFUNGAL PROPHYLAXIS
  4. IDARUBICIN HCL [Suspect]
     Indication: ACUTE MONOCYTIC LEUKAEMIA
  5. CYTARABINE [Suspect]
     Indication: ACUTE MONOCYTIC LEUKAEMIA
  6. CYTARABINE [Suspect]
  7. ETOPOSIDE [Suspect]
     Indication: ACUTE MONOCYTIC LEUKAEMIA
  8. LEVOFLOXACIN [Suspect]
     Indication: ANTIBIOTIC PROPHYLAXIS
  9. BROAD SPECTRUM ANTIBIOTICS [Concomitant]
     Indication: FEBRILE NEUTROPENIA

REACTIONS (9)
  - ACUTE MONOCYTIC LEUKAEMIA [None]
  - APLASIA [None]
  - ASCITES [None]
  - FEBRILE NEUTROPENIA [None]
  - FIBROSIS [None]
  - PLEURAL EFFUSION [None]
  - STOMATITIS [None]
  - SUBCUTANEOUS NODULE [None]
  - VENA CAVA INJURY [None]
